FAERS Safety Report 18036017 (Version 1)
Quarter: 2020Q3

REPORT INFORMATION
  Report Type: Spontaneous
  Country: GB (occurrence: GB)
  Receive Date: 20200717
  Receipt Date: 20200717
  Transmission Date: 20201103
  Serious: Yes (Congenital Anomaly, Other)
  Sender: FDA-Public Use
  Company Number: GB-TORRENT-00023807

PATIENT

DRUGS (1)
  1. ARIPIPRAZOLE. [Suspect]
     Active Substance: ARIPIPRAZOLE
     Indication: SCHIZOPHRENIA
     Dosage: UNKNOWN
     Route: 064

REACTIONS (3)
  - Small for dates baby [Unknown]
  - Ventricular septal defect [Unknown]
  - Foetal exposure during pregnancy [Unknown]
